FAERS Safety Report 7353258-3 (Version None)
Quarter: 2011Q1

REPORT INFORMATION
  Report Type: 
  Country: None (occurrence: None)
  Receive Date: 20110315
  Receipt Date: 20110314
  Transmission Date: 20110831
  Serious: Yes (Hospitalization)
  Sender: FDA-Public Use
  Company Number: FR-SANOFI-AVENTIS-2010SA073212

PATIENT
  Age: 40 Year
  Sex: Female

DRUGS (6)
  1. TAXOL [Suspect]
     Dates: start: 20101007, end: 20101014
  2. TRASTUZUMAB [Suspect]
     Dates: start: 20100825, end: 20100825
  3. TAXOTERE [Suspect]
     Dates: start: 20100915, end: 20100915
  4. TRASTUZUMAB [Suspect]
     Dates: start: 20100901, end: 20100901
  5. TRASTUZUMAB [Suspect]
     Dates: start: 20101014, end: 20101014
  6. TAXOTERE [Suspect]
     Dates: start: 20100826, end: 20100826

REACTIONS (1)
  - HEPATIC FIBROSIS [None]
